FAERS Safety Report 11431068 (Version 2)
Quarter: 2015Q3

REPORT INFORMATION
  Report Type: Spontaneous
  Country: PE (occurrence: PE)
  Receive Date: 20150828
  Receipt Date: 20150902
  Transmission Date: 20151125
  Serious: Yes (Death, Hospitalization)
  Sender: FDA-Public Use
  Company Number: PE-ASTELLAS-2015US019565

PATIENT
  Age: 84 Year
  Sex: Male

DRUGS (1)
  1. ERLOTINIB [Suspect]
     Active Substance: ERLOTINIB
     Indication: SMALL CELL LUNG CANCER
     Route: 048
     Dates: start: 201305, end: 20141201

REACTIONS (4)
  - Head injury [Fatal]
  - Accident [Fatal]
  - Pleural effusion [Fatal]
  - Atelectasis [Fatal]

NARRATIVE: CASE EVENT DATE: 20141201
